FAERS Safety Report 19835246 (Version 2)
Quarter: 2021Q3

REPORT INFORMATION
  Report Type: Spontaneous
  Country: FR (occurrence: FR)
  Receive Date: 20210915
  Receipt Date: 20210920
  Transmission Date: 20211014
  Serious: Yes (Death, Other)
  Sender: FDA-Public Use
  Company Number: FR-TEVA-2021-FR-1952865

PATIENT
  Age: 84 Year
  Sex: Male
  Weight: 82 kg

DRUGS (2)
  1. RIXATHON [Suspect]
     Active Substance: RITUXIMAB
     Indication: WALDENSTROM^S MACROGLOBULINAEMIA
     Route: 065
     Dates: start: 20210210, end: 20210712
  2. BENDAMUSTINE HYDROCHLORIDE. [Suspect]
     Active Substance: BENDAMUSTINE HYDROCHLORIDE
     Indication: WALDENSTROM^S MACROGLOBULINAEMIA
     Route: 041
     Dates: start: 20210210, end: 20210712

REACTIONS (1)
  - Acute hepatitis B [Fatal]

NARRATIVE: CASE EVENT DATE: 20210805
